FAERS Safety Report 21383912 (Version 1)
Quarter: 2022Q3

REPORT INFORMATION
  Report Type: Spontaneous
  Country: US (occurrence: US)
  Receive Date: 20220928
  Receipt Date: 20220928
  Transmission Date: 20221027
  Serious: Yes (Hospitalization)
  Sender: FDA-Public Use
  Company Number: US-ORGANON-O2209USA002108

PATIENT
  Age: 10 Year
  Sex: Male

DRUGS (4)
  1. SINGULAIR [Suspect]
     Active Substance: MONTELUKAST SODIUM
     Indication: Asthma
     Dosage: UNK
     Route: 048
  2. PREDNISONE [Suspect]
     Active Substance: PREDNISONE
     Indication: Asthma
     Dosage: 2 COURSES
     Route: 048
  3. BUDESONIDE [Concomitant]
     Active Substance: BUDESONIDE
     Dosage: UNK UNK, DAILY, INTRANASAL
     Route: 045
  4. ASPIRIN [Concomitant]
     Active Substance: ASPIRIN
     Dosage: 40.5 MILLIGRAM
     Route: 048

REACTIONS (1)
  - Drug ineffective [Unknown]
